FAERS Safety Report 9440194 (Version 1)
Quarter: 2013Q3

REPORT INFORMATION
  Report Type: Spontaneous
  Country: IE (occurrence: IE)
  Receive Date: 20130805
  Receipt Date: 20130805
  Transmission Date: 20140515
  Serious: Yes (Other)
  Sender: FDA-Public Use
  Company Number: PHHY2013IE081301

PATIENT
  Age: 28 Year
  Sex: Female

DRUGS (1)
  1. GILENYA [Suspect]
     Indication: MULTIPLE SCLEROSIS
     Dosage: UNK
     Route: 048
     Dates: start: 201205

REACTIONS (7)
  - Hemianopia homonymous [Unknown]
  - Central nervous system lesion [Unknown]
  - Incontinence [Unknown]
  - Speech disorder [Unknown]
  - Dyspraxia [Unknown]
  - Ataxia [Unknown]
  - Cognitive disorder [Unknown]
